FAERS Safety Report 12528720 (Version 1)
Quarter: 2016Q3

REPORT INFORMATION
  Report Type: Spontaneous
  Country: US (occurrence: US)
  Receive Date: 20160705
  Receipt Date: 20160705
  Transmission Date: 20161109
  Serious: Yes (Other)
  Sender: FDA-Public Use
  Company Number: US-SAOL THERAPEUTICS-2016SAO00064

PATIENT
  Sex: Female

DRUGS (1)
  1. LIORESAL [Suspect]
     Active Substance: BACLOFEN
     Indication: MUSCLE SPASTICITY
     Dosage: 140 ?G, \DAY
     Route: 037
     Dates: start: 20160119

REACTIONS (4)
  - Wound infection staphylococcal [Unknown]
  - Device dislocation [Recovered/Resolved]
  - Fall [Recovered/Resolved]
  - Seroma [Unknown]

NARRATIVE: CASE EVENT DATE: 2016
